FAERS Safety Report 6346007-9 (Version None)
Quarter: 2009Q3

REPORT INFORMATION
  Report Type: 
  Country: None (occurrence: None)
  Receive Date: 20090821
  Receipt Date: 20090616
  Transmission Date: 20100115
  Serious: No
  Sender: FDA-Public Use
  Company Number: 8047879

PATIENT
  Age: 46 Year
  Sex: Male
  Weight: 115.9 kg

DRUGS (11)
  1. CIMZIA [Suspect]
     Indication: CROHN'S DISEASE
     Dosage: 200 MG /M SC
     Route: 058
     Dates: start: 20090130
  2. FORTAMET [Concomitant]
  3. BYETTA [Concomitant]
  4. ZOLOFT [Concomitant]
  5. TRICOR [Concomitant]
  6. SIMVASTATIN [Concomitant]
  7. AMARYL [Concomitant]
  8. AZOR [Concomitant]
  9. FOLIC ACID [Concomitant]
  10. LOMOTIL [Concomitant]
  11. VICODIN [Concomitant]

REACTIONS (1)
  - INJECTION SITE HAEMATOMA [None]
